FAERS Safety Report 16323769 (Version 1)
Quarter: 2019Q2

REPORT INFORMATION
  Report Type: Spontaneous
  Country: US (occurrence: US)
  Receive Date: 20190410
  Receipt Date: 20190410
  Transmission Date: 20190711
  Serious: No
  Sender: FDA-Public Use
  Company Number: None

PATIENT
  Sex: Female
  Weight: 114.76 kg

DRUGS (16)
  1. MEDTRONIC PACEMAKER DEFIBRILLATOR [Suspect]
     Active Substance: DEVICE
  2. HYDROCODONE ACETTAMIN [Concomitant]
  3. FUROSEMIDE. [Concomitant]
     Active Substance: FUROSEMIDE
  4. COREG [Concomitant]
     Active Substance: CARVEDILOL
  5. LINZESS [Concomitant]
     Active Substance: LINACLOTIDE
  6. GABAPENTIN. [Concomitant]
     Active Substance: GABAPENTIN
  7. METFORMIN [Concomitant]
     Active Substance: METFORMIN HYDROCHLORIDE
  8. ENTRESTO [Concomitant]
     Active Substance: SACUBITRIL\VALSARTAN
  9. TIZANIDINE. [Concomitant]
     Active Substance: TIZANIDINE
  10. ATORVATATIN [Concomitant]
  11. VALSARTAN. [Suspect]
     Active Substance: VALSARTAN
     Dosage: ?          QUANTITY:2 DF DOSAGE FORM;?
     Dates: start: 20160507, end: 20181010
  12. BIDOL [Concomitant]
  13. NITRON [Concomitant]
  14. XANAX [Concomitant]
     Active Substance: ALPRAZOLAM
  15. AMITRIPTYLINE [Concomitant]
     Active Substance: AMITRIPTYLINE
  16. SPIRONOLACTONE. [Concomitant]
     Active Substance: SPIRONOLACTONE

REACTIONS (2)
  - Chronic kidney disease [None]
  - Myocardial infarction [None]
